FAERS Safety Report 6288903-7 (Version None)
Quarter: 2009Q3

REPORT INFORMATION
  Report Type: 
  Country: None (occurrence: None)
  Receive Date: 20090729
  Receipt Date: 20090716
  Transmission Date: 20100115
  Serious: Yes (Hospitalization)
  Sender: FDA-Public Use
  Company Number: FR-JNJFOC-20090708379

PATIENT
  Sex: Female

DRUGS (8)
  1. ZALDIAR [Suspect]
     Indication: DRUG USE FOR UNKNOWN INDICATION
     Route: 048
  2. BUMEX [Suspect]
     Indication: DRUG USE FOR UNKNOWN INDICATION
     Route: 048
  3. EUPHYLLINE L.A. [Suspect]
     Indication: DRUG USE FOR UNKNOWN INDICATION
     Route: 048
  4. SERETIDE DISCUS [Suspect]
     Indication: DRUG USE FOR UNKNOWN INDICATION
     Route: 055
  5. SPIRIVA [Suspect]
     Indication: DRUG USE FOR UNKNOWN INDICATION
     Route: 055
  6. SERESTA [Concomitant]
     Route: 065
  7. LOPERAMIDE HYDROCHLORIDE [Concomitant]
     Route: 065
  8. NITROGLYCERIN [Concomitant]
     Route: 065

REACTIONS (5)
  - ATRIAL FIBRILLATION [None]
  - ATRIAL FLUTTER [None]
  - FALL [None]
  - HYPOKALAEMIA [None]
  - MALAISE [None]
